FAERS Safety Report 6760377-9 (Version None)
Quarter: 2010Q2

REPORT INFORMATION
  Report Type: 
  Country: None (occurrence: None)
  Receive Date: 20100604
  Receipt Date: 20100525
  Transmission Date: 20101027
  Serious: Yes (Other)
  Sender: FDA-Public Use
  Company Number: 1000014234

PATIENT
  Age: 30 Year
  Sex: Female

DRUGS (7)
  1. CITALOPRAM HYDROBROMIDE [Suspect]
     Indication: ANXIETY
     Dosage: 20 MG (20 MG, 1 IN 1 D),ORAL
     Route: 048
     Dates: start: 20091201, end: 20100101
  2. CITALOPRAM HYDROBROMIDE [Suspect]
     Indication: CRYING
     Dosage: 20 MG (20 MG, 1 IN 1 D),ORAL
     Route: 048
     Dates: start: 20091201, end: 20100101
  3. CITALOPRAM HYDROBROMIDE [Suspect]
     Indication: SOCIAL PHOBIA
     Dosage: 20 MG (20 MG, 1 IN 1 D),ORAL
     Route: 048
     Dates: start: 20091201, end: 20100101
  4. LEXAPRO [Suspect]
     Indication: ANXIETY
     Dosage: 10 MG (10 MG, 1 IN 1 D),ORAL  ; 15 MG (15 MG, 1 IN 1 D),ORAL
     Route: 048
     Dates: start: 20100312
  5. LEXAPRO [Suspect]
     Indication: CRYING
     Dosage: 10 MG (10 MG, 1 IN 1 D),ORAL  ; 15 MG (15 MG, 1 IN 1 D),ORAL
     Route: 048
     Dates: start: 20100312
  6. LEXAPRO [Suspect]
     Indication: SOCIAL PHOBIA
     Dosage: 10 MG (10 MG, 1 IN 1 D),ORAL  ; 15 MG (15 MG, 1 IN 1 D),ORAL
     Route: 048
     Dates: start: 20100312
  7. HYDROXIZINE (TABLETS) [Concomitant]

REACTIONS (4)
  - ANXIETY [None]
  - CRYING [None]
  - IMPULSIVE BEHAVIOUR [None]
  - INTENTIONAL SELF-INJURY [None]
